FAERS Safety Report 25912977 (Version 2)
Quarter: 2025Q4

REPORT INFORMATION
  Report Type: Other
  Country: EU (occurrence: EU)
  Receive Date: 20251013
  Receipt Date: 20251030
  Transmission Date: 20260118
  Serious: Yes (Hospitalization, Other)
  Sender: STRIDES
  Company Number: EU-MENARINI-RO-MEN-117030

PATIENT
  Age: 74 Year
  Sex: Male

DRUGS (8)
  1. IBUPROFEN [Suspect]
     Active Substance: IBUPROFEN
     Indication: Osteoarthritis
     Dosage: UNK
     Route: 065
  2. IBUPROFEN [Suspect]
     Active Substance: IBUPROFEN
     Indication: Analgesic therapy
  3. TRAMADOL [Suspect]
     Active Substance: TRAMADOL
     Indication: Osteoarthritis
     Dosage: UNK
     Route: 065
  4. DEXKETOPROFEN\TRAMADOL [Suspect]
     Active Substance: DEXKETOPROFEN\TRAMADOL
     Indication: Osteoarthritis
     Dosage: UNK
     Route: 065
  5. DEXKETOPROFEN [Suspect]
     Active Substance: DEXKETOPROFEN
     Indication: Osteoarthritis
     Dosage: UNK
     Route: 065
  6. TRAMADOL [Concomitant]
     Active Substance: TRAMADOL
     Indication: Osteoarthritis
     Dosage: UNK
     Route: 065
  7. TRAMADOL [Concomitant]
     Active Substance: TRAMADOL
     Indication: Analgesic therapy
  8. DEXKETOPROFEN TROMETAMOL [Concomitant]
     Active Substance: DEXKETOPROFEN TROMETAMOL
     Indication: Analgesic therapy
     Dosage: UNK
     Route: 065

REACTIONS (7)
  - Anuria [Unknown]
  - Electrolyte imbalance [Unknown]
  - Acid base balance abnormal [Unknown]
  - Oliguria [Unknown]
  - Acidosis [Unknown]
  - Acute kidney injury [Unknown]
  - Wrong product administered [Unknown]
